FAERS Safety Report 23242675 (Version 1)
Quarter: 2023Q4

REPORT INFORMATION
  Report Type: Spontaneous
  Country: US (occurrence: US)
  Receive Date: 20231129
  Receipt Date: 20231129
  Transmission Date: 20240110
  Serious: No
  Sender: FDA-Public Use
  Company Number: US-Dermavant-000892

PATIENT
  Age: 69 Year
  Sex: Female

DRUGS (1)
  1. TAPINAROF [Suspect]
     Active Substance: TAPINAROF

REACTIONS (5)
  - Peripheral swelling [Unknown]
  - Skin burning sensation [Unknown]
  - Skin exfoliation [Unknown]
  - Dry skin [Unknown]
  - Skin irritation [Unknown]
